FAERS Safety Report 7838296-6 (Version None)
Quarter: 2011Q4

REPORT INFORMATION
  Report Type: 
  Country: None (occurrence: None)
  Receive Date: 20111024
  Receipt Date: 20111011
  Transmission Date: 20120403
  Serious: Yes (Hospitalization)
  Sender: FDA-Public Use
  Company Number: US-GILEAD-2010-0029165

PATIENT

DRUGS (5)
  1. ACETAMINOPHEN [Concomitant]
     Dates: start: 20100322, end: 20100325
  2. EMTRICITABINE/TENOFOVIR DISOPROXIL FUMARATE [Suspect]
     Dates: start: 20090810
  3. CETIRIZINE HCL [Concomitant]
     Dates: start: 20100126, end: 20100202
  4. MAGNESIUM TRISILLICATE [Concomitant]
     Dates: start: 20100322, end: 20100327
  5. CHLORPHENIRAMINE MALEATE [Concomitant]
     Dates: start: 20100222, end: 20100227

REACTIONS (2)
  - EYELID INJURY [None]
  - CONVULSION [None]
